FAERS Safety Report 16871867 (Version 2)
Quarter: 2019Q4

REPORT INFORMATION
  Report Type: Spontaneous
  Country: US (occurrence: US)
  Receive Date: 20191001
  Receipt Date: 20191126
  Transmission Date: 20200122
  Serious: No
  Sender: FDA-Public Use
  Company Number: US-CELGENEUS-USA-20190908472

PATIENT
  Sex: Female
  Weight: 59.02 kg

DRUGS (3)
  1. RETACRIT [Concomitant]
     Active Substance: EPOETIN ALFA-EPBX
     Indication: ANAEMIA
     Route: 058
  2. DARZALEX [Concomitant]
     Active Substance: DARATUMUMAB
     Indication: PLASMA CELL MYELOMA
     Route: 041
  3. POMALYST [Suspect]
     Active Substance: POMALIDOMIDE
     Indication: PLASMA CELL MYELOMA
     Dosage: 4 MILLIGRAM
     Route: 048
     Dates: start: 20190609

REACTIONS (4)
  - Fatigue [Not Recovered/Not Resolved]
  - Anaemia [Unknown]
  - Dyspnoea [Not Recovered/Not Resolved]
  - Light chain analysis increased [Not Recovered/Not Resolved]

NARRATIVE: CASE EVENT DATE: 2019
